FAERS Safety Report 7057271-5 (Version None)
Quarter: 2010Q4

REPORT INFORMATION
  Report Type: 
  Country: None (occurrence: None)
  Receive Date: 20101021
  Receipt Date: 20101021
  Transmission Date: 20110411
  Serious: Yes (Hospitalization)
  Sender: FDA-Public Use
  Company Number: None

PATIENT
  Sex: Female
  Weight: 92.7 kg

DRUGS (2)
  1. CARBOPLATIN [Suspect]
     Dosage: 1665 MG
     Dates: end: 20100922
  2. ETOPOSIDE [Suspect]
     Dates: end: 20100924

REACTIONS (2)
  - ANAEMIA [None]
  - FATIGUE [None]
